FAERS Safety Report 23213270 (Version 1)
Quarter: 2023Q4

REPORT INFORMATION
  Report Type: Spontaneous
  Country: NZ (occurrence: NZ)
  Receive Date: 20231121
  Receipt Date: 20231121
  Transmission Date: 20240110
  Serious: Yes (Other)
  Sender: FDA-Public Use
  Company Number: NZ-SUN PHARMACEUTICAL INDUSTRIES LTD-2023R1-419079

PATIENT
  Age: 57 Year
  Sex: Male

DRUGS (2)
  1. DIGOXIN [Suspect]
     Active Substance: DIGOXIN
     Indication: Atrial fibrillation
     Route: 065
  2. DILTIAZEM [Suspect]
     Active Substance: DILTIAZEM
     Indication: Atrial fibrillation
     Route: 065

REACTIONS (4)
  - Acute kidney injury [Unknown]
  - Toxicity to various agents [Unknown]
  - Circulatory collapse [Unknown]
  - Gastrointestinal disorder [Unknown]
